FAERS Safety Report 21603418 (Version 1)
Quarter: 2022Q4

REPORT INFORMATION
  Report Type: Spontaneous
  Country: US (occurrence: US)
  Receive Date: 20221116
  Receipt Date: 20221116
  Transmission Date: 20230112
  Serious: Yes (Other)
  Sender: FDA-Public Use
  Company Number: US-PFIZER INC-202201296802

PATIENT

DRUGS (1)
  1. PAXLOVID [Suspect]
     Active Substance: NIRMATRELVIR\RITONAVIR
     Indication: COVID-19 treatment
     Dosage: UNK

REACTIONS (6)
  - Dyspnoea [Unknown]
  - Palpitations [Unknown]
  - Fatigue [Unknown]
  - Insomnia [Unknown]
  - Somnolence [Unknown]
  - Intentional product misuse [Unknown]
